FAERS Safety Report 19941721 (Version 1)
Quarter: 2021Q4

REPORT INFORMATION
  Report Type: Spontaneous
  Country: US (occurrence: US)
  Receive Date: 20211008
  Receipt Date: 20211008
  Transmission Date: 20220304
  Serious: Yes (unspecified)
  Sender: FDA-Public Use
  Company Number: None

PATIENT
  Age: 39 Year
  Sex: Female

DRUGS (1)
  1. REGEN-COV [Suspect]
     Active Substance: CASIRIVIMAB\IMDEVIMAB
     Dates: start: 20211004, end: 20211004

REACTIONS (4)
  - Chest pain [None]
  - Spinal pain [None]
  - Headache [None]
  - Dysgeusia [None]

NARRATIVE: CASE EVENT DATE: 20211004
